FAERS Safety Report 6148437-7 (Version None)
Quarter: 2009Q2

REPORT INFORMATION
  Report Type: 
  Country: None (occurrence: None)
  Receive Date: 20090408
  Receipt Date: 20090327
  Transmission Date: 20091009
  Serious: Yes (Other)
  Sender: FDA-Public Use
  Company Number: US-PFIZER INC-2009169248

PATIENT
  Sex: Male
  Weight: 72.5 kg

DRUGS (5)
  1. CHANTIX [Suspect]
     Indication: SMOKING CESSATION THERAPY
     Dosage: 0.5 MG, 1X/DAY
     Route: 048
     Dates: start: 20090113, end: 20090101
  2. ANTACID TAB [Concomitant]
     Dosage: UNK
  3. DRUG, UNSPECIFIED [Concomitant]
  4. ZITHROMAX [Concomitant]
  5. PRILOSEC [Concomitant]

REACTIONS (3)
  - APATHY [None]
  - FEELING ABNORMAL [None]
  - SUICIDAL BEHAVIOUR [None]
